FAERS Safety Report 7547266-7 (Version None)
Quarter: 2011Q2

REPORT INFORMATION
  Report Type: 
  Country: None (occurrence: None)
  Receive Date: 20110614
  Receipt Date: 20110531
  Transmission Date: 20111010
  Serious: Yes (Hospitalization)
  Sender: FDA-Public Use
  Company Number: CA-JNJFOC-20110600986

PATIENT
  Sex: Female
  Weight: 99 kg

DRUGS (2)
  1. REMICADE [Suspect]
     Indication: CROHN'S DISEASE
     Route: 042
     Dates: end: 20110407
  2. REMICADE [Suspect]
     Route: 042

REACTIONS (1)
  - NEPHROLITHIASIS [None]
